FAERS Safety Report 16955846 (Version 1)
Quarter: 2019Q4

REPORT INFORMATION
  Report Type: Report from Study
  Country: GB (occurrence: GB)
  Receive Date: 20191024
  Receipt Date: 20191024
  Transmission Date: 20200122
  Serious: Yes (Hospitalization, Other)
  Sender: FDA-Public Use
  Company Number: GB-JNJFOC-20191020030

PATIENT

DRUGS (6)
  1. STELARA [Suspect]
     Active Substance: USTEKINUMAB
     Indication: CROHN^S DISEASE
     Route: 058
     Dates: start: 20180403, end: 20190429
  2. ONDANSETRON [Concomitant]
     Active Substance: ONDANSETRON
     Route: 065
  3. CIPROFLOXACIN. [Concomitant]
     Active Substance: CIPROFLOXACIN
     Route: 048
  4. CLINDAMYCIN. [Concomitant]
     Active Substance: CLINDAMYCIN
     Route: 048
  5. LOPERAMIDE [Concomitant]
     Active Substance: LOPERAMIDE
     Route: 048
  6. OMEPRAZOLE. [Concomitant]
     Active Substance: OMEPRAZOLE
     Route: 048

REACTIONS (5)
  - Postoperative wound infection [Unknown]
  - Fistula [Unknown]
  - Pneumonia [Recovered/Resolved]
  - Colectomy [Recovered/Resolved]
  - Hyperplasia adrenal [Unknown]

NARRATIVE: CASE EVENT DATE: 20190515
